FAERS Safety Report 10012450 (Version 1)
Quarter: 2014Q1

REPORT INFORMATION
  Report Type: Spontaneous
  Country: US (occurrence: US)
  Receive Date: 20140312
  Receipt Date: 20140312
  Transmission Date: 20141002
  Serious: No
  Sender: FDA-Public Use
  Company Number: US-PFIZER INC-2014068634

PATIENT
  Age: 78 Year
  Sex: Female
  Weight: 83.9 kg

DRUGS (3)
  1. SUTENT [Suspect]
     Indication: RENAL CELL CARCINOMA
     Dosage: UNK
     Dates: start: 20140128, end: 20140218
  2. METOPROLOL [Concomitant]
     Indication: HYPERTENSION
     Dosage: UNK
  3. LISINOPRIL [Concomitant]
     Indication: HYPERTENSION
     Dosage: UNK

REACTIONS (2)
  - Platelet count decreased [Not Recovered/Not Resolved]
  - White blood cell count decreased [Not Recovered/Not Resolved]
